FAERS Safety Report 9519468 (Version 1)
Quarter: 2013Q1

REPORT INFORMATION
  Report Type: Spontaneous
  Country: US (occurrence: None)
  Receive Date: 20130305
  Receipt Date: 20130305
  Transmission Date: 20140127
  Serious: Yes (Other)
  Sender: FDA-Public Use
  Company Number: 163-21880-12062991

PATIENT
  Age: 66 Year
  Sex: Female
  Weight: 63.96 kg

DRUGS (8)
  1. REVLIMID (LENALIDOMIDE) (CAPSULES) [Suspect]
     Indication: PLASMA CELL MYELOMA
     Dosage: 25 MG, 14 IN 21 D, PO
     Route: 048
     Dates: start: 20120511
  2. ATENOLOL (ATENOLOL) (UNKNOWN) [Concomitant]
  3. HYDROCODONE/APAP (VICODIN) (UNKNOWN) [Concomitant]
  4. MORPHINE SULFATE (MORPHINE SULFATE) (UNKNOWN) [Concomitant]
  5. WARFARIN (WARFARIN) (UNKNOWN) [Concomitant]
  6. PROCHLORPERAZINE( PROCHLORPERAZINE) (UNKNOWN)? [Concomitant]
  7. COUMADIN (WARFARIN SODIUM) (UNKNOWN) [Concomitant]
  8. LOVENOX (HEPARIN-FRACTION, SODIUM SALT) (UNKNOWN) [Concomitant]

REACTIONS (6)
  - Dehydration [None]
  - Nausea [None]
  - Vomiting [None]
  - Diarrhoea [None]
  - Drug intolerance [None]
  - Hypokalaemia [None]
